FAERS Safety Report 8294319-4 (Version None)
Quarter: 2012Q2

REPORT INFORMATION
  Report Type: 
  Country: None (occurrence: None)
  Receive Date: 20120418
  Receipt Date: 20120413
  Transmission Date: 20120825
  Serious: Yes (Other)
  Sender: FDA-Public Use
  Company Number: DE-SANOFI-AVENTIS-2012SA010578

PATIENT
  Age: 54 Year
  Sex: Male
  Weight: 99 kg

DRUGS (5)
  1. ARAVA [Suspect]
     Route: 048
     Dates: start: 20100305, end: 20120209
  2. NEBIVOLOL HCL [Concomitant]
     Indication: HYPERTENSION
     Route: 048
     Dates: start: 20100115
  3. ETANERCEPT [Concomitant]
     Route: 058
  4. AMLODIPINE/VALSARTAN [Concomitant]
     Indication: HYPERTENSION
     Route: 048
     Dates: start: 20070401
  5. FLUVASTATIN SODIUM [Concomitant]
     Indication: HYPERLIPIDAEMIA
     Route: 048
     Dates: start: 20070401

REACTIONS (2)
  - PERONEAL NERVE PALSY [None]
  - GAIT DISTURBANCE [None]
